FAERS Safety Report 9069878 (Version 1)
Quarter: 2013Q1

REPORT INFORMATION
  Report Type: Report from Study
  Country: US (occurrence: US)
  Receive Date: 20130131
  Receipt Date: 20130131
  Transmission Date: 20140127
  Serious: No
  Sender: FDA-Public Use
  Company Number: US-ABBOTT-12P-163-1000389-00

PATIENT
  Age: 53 Year
  Sex: Male

DRUGS (9)
  1. HUMIRA [Suspect]
     Indication: CROHN^S DISEASE
     Dates: start: 20120819
  2. SULFASALAZINE [Concomitant]
     Indication: CROHN^S DISEASE
     Dosage: 2 TABS TWICE DAILY
     Route: 048
  3. DOXAZOSIN MESYLATE [Concomitant]
     Indication: PROSTATIC DISORDER
     Dosage: 4MG DAILY
     Route: 048
  4. OXYBUTYNIN CHLORIDE [Concomitant]
     Indication: PROSTATIC DISORDER
     Dosage: 5MG DAILY
     Route: 048
  5. FISH OIL [Concomitant]
     Indication: BLOOD CHOLESTEROL
     Dosage: 1 TAB DAILY
  6. ASA [Concomitant]
     Indication: CARDIOVASCULAR EVENT PROPHYLAXIS
     Dosage: 81MG DAILY
     Route: 048
  7. OSTEO BI-FLEX [Concomitant]
     Indication: ARTHROPATHY
     Route: 048
  8. CENTRUM MVI [Concomitant]
     Indication: VITAMIN SUPPLEMENTATION
     Dosage: 1 PILL DAILY
  9. METHOTREXATE [Concomitant]
     Indication: CROHN^S DISEASE
     Dosage: EVERY WEEK
     Route: 058
     Dates: start: 20120906

REACTIONS (3)
  - Diarrhoea [Not Recovered/Not Resolved]
  - Crohn^s disease [Not Recovered/Not Resolved]
  - Anal fistula infection [Not Recovered/Not Resolved]
